FAERS Safety Report 24166751 (Version 3)
Quarter: 2024Q3

REPORT INFORMATION
  Report Type: Spontaneous
  Country: JP (occurrence: JP)
  Receive Date: 20240802
  Receipt Date: 20240829
  Transmission Date: 20241016
  Serious: No
  Sender: MERCK
  Company Number: JP-MSD-M2024-30007

PATIENT
  Age: 7 Decade
  Sex: Female

DRUGS (5)
  1. LAGEVRIO [Suspect]
     Active Substance: MOLNUPIRAVIR
     Indication: COVID-19 treatment
     Dosage: 1600 MILLIGRAM, ONCE, EVENING
     Route: 048
     Dates: start: 20240728, end: 20240728
  2. LAGEVRIO [Suspect]
     Active Substance: MOLNUPIRAVIR
     Dosage: 1600 MILLIGRAM, ONCE, MORNING
     Route: 048
     Dates: start: 20240729, end: 20240729
  3. LAGEVRIO [Suspect]
     Active Substance: MOLNUPIRAVIR
     Dosage: 800 MILLIGRAM, BID
     Route: 048
     Dates: start: 20240730, end: 20240801
  4. ACETAMINOPHEN [Concomitant]
     Active Substance: ACETAMINOPHEN
     Dosage: 400 MILLIGRAM, PRN
     Route: 048
  5. METOCLOPRAMIDE [Concomitant]
     Active Substance: METOCLOPRAMIDE
     Dosage: 10 MILLIGRAM, BID
     Route: 048
     Dates: start: 20240728, end: 20240801

REACTIONS (3)
  - Pollakiuria [Unknown]
  - Overdose [Unknown]
  - Product use issue [Unknown]

NARRATIVE: CASE EVENT DATE: 20240728
